FAERS Safety Report 17031960 (Version 1)
Quarter: 2019Q4

REPORT INFORMATION
  Report Type: Spontaneous
  Country: IT (occurrence: IT)
  Receive Date: 20191114
  Receipt Date: 20191114
  Transmission Date: 20200122
  Serious: Yes (Other)
  Sender: FDA-Public Use
  Company Number: IT-EMD SERONO-9128048

PATIENT
  Age: 70 Year
  Sex: Female

DRUGS (4)
  1. SYNJARDY [Suspect]
     Active Substance: EMPAGLIFLOZIN\METFORMIN HYDROCHLORIDE
     Indication: PRODUCT USED FOR UNKNOWN INDICATION
     Dates: start: 2017
  2. TRULICITY [Suspect]
     Active Substance: DULAGLUTIDE
     Indication: PRODUCT USED FOR UNKNOWN INDICATION
     Dosage: TRULICITY (DULAGLUTIDE) SOLUTION FOR INJECTION IN PRE-FILLED SYRINGE
     Dates: end: 2017
  3. METFORMIN [Suspect]
     Active Substance: METFORMIN HYDROCHLORIDE
     Indication: PRODUCT USED FOR UNKNOWN INDICATION
     Dates: start: 2017
  4. TRULICITY [Suspect]
     Active Substance: DULAGLUTIDE
     Dosage: TRULICITY (DULAGLUTIDE) SOLUTION FOR INJECTION IN PRE-FILLED SYRINGE

REACTIONS (3)
  - Abdominal pain upper [Unknown]
  - Cystitis haemorrhagic [Unknown]
  - Pancreatic neoplasm [Unknown]
